FAERS Safety Report 5440786-0 (Version None)
Quarter: 2007Q3

REPORT INFORMATION
  Report Type: 
  Country: None (occurrence: None)
  Receive Date: 20070831
  Receipt Date: 20070821
  Transmission Date: 20080115
  Serious: Yes (Hospitalization)
  Sender: FDA-Public Use
  Company Number: IN-GILEAD-2006-0010368

PATIENT
  Age: 31 Year
  Sex: Female

DRUGS (12)
  1. EMTRICITABINE [Suspect]
     Indication: HIV INFECTION
     Route: 048
     Dates: start: 20060621, end: 20060925
  2. EMTRICITABINE [Suspect]
     Dates: start: 20060928
  3. DIDANOSINE [Suspect]
     Indication: HIV INFECTION
     Route: 048
     Dates: start: 20060621, end: 20060925
  4. DIDANOSINE [Suspect]
     Dates: start: 20060928
  5. ATAZANAVIR SULFATE [Suspect]
     Indication: HIV INFECTION
     Route: 048
     Dates: start: 20060621, end: 20060925
  6. ATAZANAVIR SULFATE [Suspect]
     Dates: start: 20060928
  7. ETHAMBUTOL HYDROCHLORIDE [Concomitant]
  8. INH [Concomitant]
  9. SULFAMETHOXAZOLE + TRIMETHOPRIM [Concomitant]
  10. LEVOCETIRIZINE [Concomitant]
  11. MULTIVITAMIN [Concomitant]
  12. IRON [Concomitant]

REACTIONS (1)
  - PANCREATITIS [None]
